FAERS Safety Report 7657028-8 (Version None)
Quarter: 2011Q3

REPORT INFORMATION
  Report Type: 
  Country: None (occurrence: None)
  Receive Date: 20110804
  Receipt Date: 20110729
  Transmission Date: 20111222
  Serious: Yes (Other)
  Sender: FDA-Public Use
  Company Number: PL-BAYER-2011-066508

PATIENT
  Age: 70 Year
  Sex: Female

DRUGS (5)
  1. PIRACETAM [Concomitant]
  2. STATIN [Concomitant]
  3. HYPOTENSIVE MEDICATIONS [Concomitant]
  4. ULTRAVIST 150 [Suspect]
     Indication: ARTERIOGRAM CORONARY
  5. ASPIRIN [Concomitant]

REACTIONS (3)
  - EYE MOVEMENT DISORDER [None]
  - HEMIPARESIS [None]
  - DYSAESTHESIA [None]
